FAERS Safety Report 9186397 (Version 1)
Quarter: 2013Q1

REPORT INFORMATION
  Report Type: Report from Study
  Country: CA (occurrence: CA)
  Receive Date: 20130325
  Receipt Date: 20130325
  Transmission Date: 20140127
  Serious: Yes (Hospitalization)
  Sender: FDA-Public Use
  Company Number: CA-JNJFOC-20130202950

PATIENT
  Sex: Male
  Weight: 79.5 kg

DRUGS (16)
  1. REMICADE [Suspect]
     Indication: CROHN^S DISEASE
     Dosage: THE PATIENT WAS ON 45TH INFUSION
     Route: 042
     Dates: start: 20130131
  2. REMICADE [Suspect]
     Indication: CROHN^S DISEASE
     Route: 042
     Dates: start: 20061218
  3. FENTANYL PATCH [Concomitant]
     Route: 065
  4. SOLUCORTEF [Concomitant]
     Indication: PREMEDICATION
     Route: 065
  5. OXYCODONE [Concomitant]
     Route: 065
  6. VITAMIN B12 [Concomitant]
     Route: 065
  7. TESTOSTERONE [Concomitant]
     Route: 065
  8. BUSCOPAN [Concomitant]
     Route: 065
  9. NORVASC [Concomitant]
     Route: 065
  10. ASA [Concomitant]
     Route: 065
  11. METOPROLOL [Concomitant]
     Route: 065
  12. EFFEXOR [Concomitant]
     Route: 065
  13. CALCIUM [Concomitant]
     Route: 065
  14. SIMVASTATIN [Concomitant]
     Route: 065
  15. CALCITRIOL [Concomitant]
     Route: 065
  16. UNKNOWN MEDICATION [Concomitant]
     Route: 065

REACTIONS (3)
  - Abdominal pain [Recovered/Resolved]
  - Frequent bowel movements [Recovered/Resolved]
  - Gastroenteritis viral [Recovered/Resolved]
